FAERS Safety Report 19751169 (Version 12)
Quarter: 2024Q3

REPORT INFORMATION
  Report Type: Report from Study
  Country: CA (occurrence: CA)
  Receive Date: 20210826
  Receipt Date: 20240803
  Transmission Date: 20241016
  Serious: Yes (Other)
  Sender: ROCHE
  Company Number: CA-ROCHE-2571924

PATIENT
  Age: 38 Year
  Sex: Female

DRUGS (6)
  1. OCREVUS [Suspect]
     Active Substance: OCRELIZUMAB
     Indication: Relapsing-remitting multiple sclerosis
     Dosage: DAY 0, 14 THEN 600 MG Q6M; CONCENTRATE FOR INTRAVENOUS INFUSION
     Route: 042
     Dates: start: 20200305
  2. AMILORIDE [Concomitant]
     Active Substance: AMILORIDE
  3. BACLOFEN [Concomitant]
     Active Substance: BACLOFEN
  4. VOLTAREN [Concomitant]
     Active Substance: DICLOFENAC SODIUM
  5. PREDNISONE [Concomitant]
     Active Substance: PREDNISONE
  6. PFIZER-BIONTECH COVID-19 VACCINE [Concomitant]
     Active Substance: TOZINAMERAN

REACTIONS (7)
  - Demyelination [Unknown]
  - Multiple sclerosis [Unknown]
  - Urinary tract infection [Not Recovered/Not Resolved]
  - Back pain [Recovering/Resolving]
  - Headache [Not Recovered/Not Resolved]
  - Amenorrhoea [Not Recovered/Not Resolved]
  - Dizziness [Unknown]

NARRATIVE: CASE EVENT DATE: 20220410
